FAERS Safety Report 18469758 (Version 1)
Quarter: 2020Q4

REPORT INFORMATION
  Report Type: Spontaneous
  Country: JP (occurrence: JP)
  Receive Date: 20201105
  Receipt Date: 20201105
  Transmission Date: 20210114
  Serious: Yes (Hospitalization, Other)
  Sender: FDA-Public Use
  Company Number: JP-PFIZER INC-2020428566

PATIENT
  Age: 79 Year
  Sex: Female

DRUGS (13)
  1. THYRADIN S [Concomitant]
     Active Substance: LEVOTHYROXINE SODIUM
     Dosage: UNK
  2. FEXOFENADINE HYDROCHLORIDE. [Concomitant]
     Active Substance: FEXOFENADINE HYDROCHLORIDE
     Dosage: UNK
  3. MOSAPRIDE CITRATE [Concomitant]
     Active Substance: MOSAPRIDE CITRATE
     Dosage: UNK
  4. SENNA [Concomitant]
     Active Substance: SENNA LEAF\SENNOSIDES\SENNOSIDES A AND B
     Dosage: UNK
  5. BISOPROLOL FUMARATE. [Concomitant]
     Active Substance: BISOPROLOL FUMARATE
     Dosage: UNK
  6. NEXIUM [Concomitant]
     Active Substance: ESOMEPRAZOLE MAGNESIUM
     Dosage: UNK
  7. KETOTIFEN [KETOTIFEN FUMARATE] [Concomitant]
     Dosage: UNK
  8. LOXOPROFEN NA [Concomitant]
     Active Substance: LOXOPROFEN SODIUM
     Dosage: UNK
  9. CELECOX [Suspect]
     Active Substance: CELECOXIB
     Indication: PAIN IN EXTREMITY
     Dosage: 100 MG, 2X/DAY
     Route: 048
     Dates: start: 20200603, end: 20200609
  10. BAYASPIRIN [Concomitant]
     Active Substance: ASPIRIN
     Dosage: UNK
  11. PREDONINE [Concomitant]
     Active Substance: PREDNISOLONE
     Dosage: UNK
  12. TELTHIA [Concomitant]
     Dosage: UNK
  13. ROSUVASTATIN CALCIUM. [Concomitant]
     Active Substance: ROSUVASTATIN CALCIUM
     Dosage: UNK

REACTIONS (2)
  - Oedema peripheral [Recovering/Resolving]
  - Swelling of eyelid [Recovering/Resolving]

NARRATIVE: CASE EVENT DATE: 20200603
